FAERS Safety Report 13056768 (Version 4)
Quarter: 2017Q4

REPORT INFORMATION
  Report Type: Spontaneous
  Country: US (occurrence: US)
  Receive Date: 20161222
  Receipt Date: 20171030
  Transmission Date: 20180320
  Serious: Yes (Hospitalization, Other)
  Sender: FDA-Public Use
  Company Number: US-BIOMARINAP-US-2016-110324

PATIENT
  Age: 56 Year
  Sex: Male

DRUGS (4)
  1. ALDURAZYME [Suspect]
     Active Substance: LARONIDASE
     Indication: MUCOPOLYSACCHARIDOSIS I
     Dosage: 26.1 MG, QW
     Route: 041
     Dates: start: 20081020
  2. TYLENOL [Concomitant]
     Active Substance: ACETAMINOPHEN
     Indication: PREMEDICATION
  3. ALDURAZYME [Suspect]
     Active Substance: LARONIDASE
     Dosage: 26.1 MG, QW
     Route: 041
     Dates: start: 20150818, end: 20170811
  4. BENADRYL [Concomitant]
     Active Substance: DIPHENHYDRAMINE HYDROCHLORIDE
     Indication: PREMEDICATION

REACTIONS (9)
  - Fall [Unknown]
  - Tracheostomy [Unknown]
  - Fatigue [Unknown]
  - Eating disorder [Unknown]
  - Pyrexia [Unknown]
  - Cerebrovascular accident [Not Recovered/Not Resolved]
  - Asthenia [Unknown]
  - Speech disorder [Not Recovered/Not Resolved]
  - Gait disturbance [Unknown]

NARRATIVE: CASE EVENT DATE: 201708
